FAERS Safety Report 9932592 (Version 1)
Quarter: 2014Q1

REPORT INFORMATION
  Report Type: Spontaneous
  Country: US (occurrence: US)
  Receive Date: 20140228
  Receipt Date: 20140228
  Transmission Date: 20141002
  Serious: No
  Sender: FDA-Public Use
  Company Number: US-GLAXOSMITHKLINE-A1013443A

PATIENT
  Sex: Male

DRUGS (3)
  1. SUMATRIPTAN SUCCINATE [Suspect]
     Indication: PRODUCT USED FOR UNKNOWN INDICATION
     Route: 065
  2. SEPTOCAINE [Suspect]
     Indication: DENTAL OPERATION
     Route: 065
     Dates: start: 20130221, end: 20130221
  3. LIDOCAINE [Suspect]
     Indication: DENTAL OPERATION
     Route: 065
     Dates: start: 20130221, end: 20130221

REACTIONS (1)
  - Drug interaction [Unknown]
